FAERS Safety Report 5076265-2 (Version None)
Quarter: 2006Q3

REPORT INFORMATION
  Report Type: 
  Country: None (occurrence: None)
  Receive Date: 20060804
  Receipt Date: 20060721
  Transmission Date: 20061208
  Serious: Yes (Death)
  Sender: FDA-Public Use
  Company Number: 2006-158

PATIENT
  Age: 45 Year
  Sex: Female

DRUGS (7)
  1. CITALOPRAM 20MG [Suspect]
     Indication: DEPRESSION
     Dosage: 20MG DAILY
     Dates: start: 20031001
  2. ABILIFY [Suspect]
     Indication: PSYCHOTIC DISORDER
     Dosage: 30MG DAILY
     Dates: start: 20050201
  3. KEMADRIN [Suspect]
     Indication: EPILEPSY
     Dosage: 10MG DAILY
     Dates: start: 20060501
  4. KEPPRA [Suspect]
     Indication: EPILEPSY
     Dosage: 2000MG DAILY
     Dates: start: 20060501
  5. TEGRETOL [Suspect]
     Indication: EPILEPSY
     Dosage: 600MG DAILY
     Dates: start: 19920101
  6. FEMODENE [Concomitant]
  7. SOLIAN [Concomitant]

REACTIONS (3)
  - AGGRESSION [None]
  - POOR PERSONAL HYGIENE [None]
  - WEIGHT INCREASED [None]
